FAERS Safety Report 15464499 (Version 1)
Quarter: 2018Q4

REPORT INFORMATION
  Report Type: Spontaneous
  Country: US (occurrence: US)
  Receive Date: 20181004
  Receipt Date: 20181004
  Transmission Date: 20190204
  Serious: No
  Sender: FDA-Public Use
  Company Number: US-ASTRAZENECA-2018SF13133

PATIENT
  Age: 605 Month
  Sex: Male

DRUGS (3)
  1. BYDUREON [Suspect]
     Active Substance: EXENATIDE
     Route: 058
  2. BYDUREON BCISE [Suspect]
     Active Substance: EXENATIDE
     Route: 058
     Dates: start: 20180811, end: 20180818
  3. BYDUREON [Suspect]
     Active Substance: EXENATIDE
     Dosage: 2 MG. BIWK
     Route: 058
     Dates: start: 20180826

REACTIONS (5)
  - Injection site mass [Recovered/Resolved]
  - Injection site urticaria [Recovered/Resolved]
  - Circumstance or information capable of leading to medication error [Unknown]
  - Off label use [Unknown]
  - Blood glucose increased [Recovered/Resolved]

NARRATIVE: CASE EVENT DATE: 201808
